FAERS Safety Report 7478558-8 (Version None)
Quarter: 2011Q2

REPORT INFORMATION
  Report Type: 
  Country: None (occurrence: None)
  Receive Date: 20110513
  Receipt Date: 20110509
  Transmission Date: 20111010
  Serious: Yes (Other)
  Sender: FDA-Public Use
  Company Number: US-PFIZER INC-2011100141

PATIENT
  Age: 60 Year
  Sex: Female

DRUGS (3)
  1. NELFINAVIR MESYLATE [Suspect]
  2. LAMIVUDINE [Suspect]
  3. STAVUDINE [Suspect]

REACTIONS (1)
  - PULMONARY SARCOIDOSIS [None]
